FAERS Safety Report 4510966-7 (Version None)
Quarter: 2004Q4

REPORT INFORMATION
  Report Type: 
  Country: None (occurrence: None)
  Receive Date: 20040928
  Receipt Date: 20040607
  Transmission Date: 20050328
  Serious: No
  Sender: FDA-Public Use
  Company Number: 04P-163-0263086-00

PATIENT
  Sex: Female
  Weight: 97.0698 kg

DRUGS (7)
  1. HUMIRA [Suspect]
     Dosage: 40 MG, 1 IN 2 WK, SUBCUTANEOUS
     Route: 058
     Dates: start: 20040524, end: 20040524
  2. LEFLUNOMIDE [Concomitant]
  3. ALPRAZOLAM [Concomitant]
  4. ULTRACET [Concomitant]
  5. PREDNISONE [Concomitant]
  6. SERTRALINE HYDROCHLORIDE [Concomitant]
  7. CETRIZINE HYDROCHLORIDE [Concomitant]

REACTIONS (5)
  - HYPOAESTHESIA [None]
  - INJECTION SITE HAEMORRHAGE [None]
  - INJECTION SITE RASH [None]
  - INJECTION SITE URTICARIA [None]
  - RASH GENERALISED [None]
